FAERS Safety Report 9352485 (Version 2)
Quarter: 2013Q4

REPORT INFORMATION
  Report Type: Spontaneous
  Country: US (occurrence: US)
  Receive Date: 20130617
  Receipt Date: 20131126
  Transmission Date: 20140711
  Serious: Yes (Death, Hospitalization)
  Sender: FDA-Public Use
  Company Number: US-B.I. PHARMACEUTICALS,INC./RIDGEFIELD-2013-BI-16752BP

PATIENT
  Age: 67 Year
  Sex: Male
  Weight: 137.89 kg

DRUGS (4)
  1. PRADAXA [Suspect]
     Indication: ATRIAL FIBRILLATION
     Dosage: 300 MG
     Dates: start: 20110606, end: 20121008
  2. CLONAZEPAM [Concomitant]
  3. PRAVACHOL [Concomitant]
     Dates: start: 2009, end: 20121024
  4. MUCINEX [Concomitant]

REACTIONS (8)
  - Cerebral haemorrhage [Fatal]
  - Cardiopulmonary failure [Fatal]
  - Multi-organ failure [Fatal]
  - Renal failure acute [Unknown]
  - Pneumonia aspiration [Unknown]
  - Sepsis [Unknown]
  - Deep vein thrombosis [Unknown]
  - Pulmonary embolism [Unknown]
